FAERS Safety Report 6619188-7 (Version None)
Quarter: 2010Q1

REPORT INFORMATION
  Report Type: 
  Country: None (occurrence: None)
  Receive Date: 20100305
  Receipt Date: 20100305
  Transmission Date: 20100710
  Serious: Yes (Other)
  Sender: FDA-Public Use
  Company Number: None

PATIENT
  Age: 64 Year
  Sex: Female
  Weight: 54.5 kg

DRUGS (4)
  1. ASPIRIN [Suspect]
     Indication: CARDIAC DISORDER
     Dosage: 81 MG DAILY
     Dates: start: 20100210, end: 20100224
  2. BONICAR [Concomitant]
  3. METHIMAZOLE [Concomitant]
  4. METOPROLOL TARTRATE [Concomitant]

REACTIONS (1)
  - DIARRHOEA [None]
